FAERS Safety Report 4648103-0 (Version None)
Quarter: 2005Q2

REPORT INFORMATION
  Report Type: 
  Country: None (occurrence: None)
  Receive Date: 20050313
  Receipt Date: 20041214
  Transmission Date: 20051028
  Serious: No
  Sender: FDA-Public Use
  Company Number: 04P-163-0283138-00

PATIENT
  Age: 58 Year
  Sex: Female
  Weight: 113.6 kg

DRUGS (2)
  1. HUMIRA [Suspect]
     Indication: RHEUMATOID ARTHRITIS
     Dosage: 40 MG, 1 IN 10 D, SUBCUTANEOUS;  40 MG, 1 IN 2 WK, SUBCUTANEOUS
     Route: 058
     Dates: start: 20030601, end: 20040101
  2. HUMIRA [Suspect]
     Indication: RHEUMATOID ARTHRITIS
     Dosage: 40 MG, 1 IN 10 D, SUBCUTANEOUS;  40 MG, 1 IN 2 WK, SUBCUTANEOUS
     Route: 058
     Dates: start: 20040101

REACTIONS (3)
  - FALL [None]
  - RASH PUSTULAR [None]
  - UPPER LIMB FRACTURE [None]
